FAERS Safety Report 26124414 (Version 1)
Quarter: 2025Q4

REPORT INFORMATION
  Report Type: Spontaneous
  Country: EU (occurrence: EU)
  Receive Date: 20251205
  Receipt Date: 20251205
  Transmission Date: 20260117
  Serious: Yes (Hospitalization)
  Sender: ABBVIE
  Company Number: EU-ABBVIE-6571785

PATIENT
  Age: 64 Year
  Sex: Male
  Weight: 78 kg

DRUGS (23)
  1. CARBIDOPA\LEVODOPA [Suspect]
     Active Substance: CARBIDOPA\LEVODOPA
     Indication: Product used for unknown indication
     Route: 050
  2. CARBIDOPA\LEVODOPA [Suspect]
     Active Substance: CARBIDOPA\LEVODOPA
  3. FOSCARBIDOPA\FOSLEVODOPA [Suspect]
     Active Substance: FOSCARBIDOPA\FOSLEVODOPA
     Indication: Parkinson^s disease
     Dosage: 240 MG/ML +12 MG/ML INFUSION SOLUTION AMPULES,
     Route: 058
     Dates: start: 2024
  4. MOVICOL [Concomitant]
     Active Substance: POLYETHYLENE GLYCOL 3350\POTASSIUM CHLORIDE\SODIUM BICARBONATE\SODIUM CHLORIDE
     Indication: Product used for unknown indication
     Dosage: AROMA FREE SACHET, 1 SACHET AT MORNING
  5. SODIUM PICOSULFATE [Concomitant]
     Active Substance: SODIUM PICOSULFATE
     Indication: Product used for unknown indication
     Dosage: DOSAGE: 7.5 MG/ML LAXATIVE 1OF 10 DROPS
  6. BISOPROLOL FUMARATE [Concomitant]
     Active Substance: BISOPROLOL FUMARATE
     Indication: Product used for unknown indication
     Dosage: 1 AT MORNING, 1 AT EVENING
  7. POLYETHYLENE GLYCOLS [Concomitant]
     Active Substance: POLYETHYLENE GLYCOLS
     Indication: Product used for unknown indication
     Dosage: 1 SACHET OF POWDER DAILY
     Route: 050
  8. METAMIZOLE SODIUM [Concomitant]
     Active Substance: METAMIZOLE SODIUM
     Indication: Product used for unknown indication
     Dosage: DOSAGE: 500 MG/ML ACTIVE 4 TIMES 30 DROPS EACH, BREAK AT NIGHT
  9. MIDODRINE HYDROCHLORIDE [Concomitant]
     Active Substance: MIDODRINE HYDROCHLORIDE
     Indication: Product used for unknown indication
     Dosage: 1 AT MORNING, 1 AT MIDDAY, 1 AT EVENING
  10. .BETA.-ACETYLDIGOXIN [Concomitant]
     Active Substance: .BETA.-ACETYLDIGOXIN
     Indication: Product used for unknown indication
     Dosage: 1 AT MORNING, 1 AT EVENING
     Dates: start: 20251114
  11. DOPAMINE [Concomitant]
     Active Substance: DOPAMINE HYDROCHLORIDE
     Indication: Product used for unknown indication
     Dosage: PUMP
     Route: 058
  12. QUETIAPINE [Concomitant]
     Active Substance: QUETIAPINE
     Indication: Product used for unknown indication
     Dates: start: 2021
  13. ENTACAPONE [Concomitant]
     Active Substance: ENTACAPONE
     Indication: Product used for unknown indication
     Dates: start: 2024
  14. ZOPICLONE [Concomitant]
     Active Substance: ZOPICLONE
     Indication: Product used for unknown indication
  15. DIPHENHYDRAMINE [Concomitant]
     Active Substance: DIPHENHYDRAMINE
     Indication: Product used for unknown indication
  16. MIDODRINE HYDROCHLORIDE [Concomitant]
     Active Substance: MIDODRINE HYDROCHLORIDE
     Indication: Product used for unknown indication
     Dosage: 1 AT MORNING, 1 AT MIDDAY, 1 AT EVENING
  17. Novodigal [Concomitant]
     Indication: Product used for unknown indication
     Dosage: 1 AT MORNING, 1 AT EVENING,?NOVODIGAL MITE
  18. BISOPROLOL FUMARATE [Concomitant]
     Active Substance: BISOPROLOL FUMARATE
     Indication: Product used for unknown indication
     Dosage: 1 AT MORNING, 1 AT EVENING
  19. CLOZAPINE [Concomitant]
     Active Substance: CLOZAPINE
     Indication: Product used for unknown indication
     Route: 050
  20. POLYETHYLENE GLYCOLS [Concomitant]
     Active Substance: POLYETHYLENE GLYCOLS
     Indication: Product used for unknown indication
     Dosage: COMBINATIONS POWDER FOR PREPARATION OF A SOLUTION TO TAKE, 1 SACHET
     Route: 050
  21. BENSERAZIDE\LEVODOPA [Concomitant]
     Active Substance: BENSERAZIDE\LEVODOPA
     Indication: Product used for unknown indication
     Dosage: 100/25 MG
     Route: 050
  22. AMPICILLIN SODIUM\SULBACTAM SODIUM [Concomitant]
     Active Substance: AMPICILLIN SODIUM\SULBACTAM SODIUM
     Indication: Product used for unknown indication
  23. SODIUM PICOSULFATE [Concomitant]
     Active Substance: SODIUM PICOSULFATE
     Indication: Product used for unknown indication
     Dosage: DOSAGE: 7.5 MG/ML

REACTIONS (13)
  - Syncope [Not Recovered/Not Resolved]
  - Nuchal rigidity [Unknown]
  - Febrile infection [Unknown]
  - Tremor [Recovering/Resolving]
  - Osteoarthritis [Unknown]
  - Ingrowing nail [Unknown]
  - Somatic symptom disorder [Unknown]
  - Psychotic disorder [Unknown]
  - Hypotension [Unknown]
  - Urinary tract infection [Unknown]
  - Orthostatic intolerance [Unknown]
  - Visual impairment [Unknown]
  - Reactive psychosis [Unknown]

NARRATIVE: CASE EVENT DATE: 20251001
